FAERS Safety Report 22285414 (Version 24)
Quarter: 2025Q4

REPORT INFORMATION
  Report Type: Spontaneous
  Country: US (occurrence: US)
  Receive Date: 20230504
  Receipt Date: 20251125
  Transmission Date: 20260118
  Serious: Yes (Other)
  Sender: PFIZER
  Company Number: US-PFIZER INC-PV202300066844

PATIENT
  Age: 67 Year
  Sex: Male
  Weight: 117.91 kg

DRUGS (10)
  1. TIKOSYN [Suspect]
     Active Substance: DOFETILIDE
     Indication: Atrial fibrillation
     Dosage: 0.5 MG, 2X/DAY
     Dates: start: 20220509
  2. TIKOSYN [Suspect]
     Active Substance: DOFETILIDE
     Indication: Herpes virus infection
     Dosage: 1 DF, 2X/DAY
  3. TIKOSYN [Suspect]
     Active Substance: DOFETILIDE
     Dosage: 500MCG, 0.1MG; 2 TABLETS EVERY DAY, 1 IN MORNING, 1 AT NIGHT
     Dates: end: 20250623
  4. TIKOSYN [Suspect]
     Active Substance: DOFETILIDE
     Dosage: TWICE A DAY ONE IN MORNING ONE IN EVENING
     Route: 048
  5. POTASSIUM CHLORIDE [Concomitant]
     Active Substance: POTASSIUM CHLORIDE
     Indication: Heart rate irregular
     Dosage: 20 MEQ, 1X/DAY (TAKES IN MORNING)
  6. MAGNESIUM CHLORIDE [Concomitant]
     Active Substance: MAGNESIUM CHLORIDE
     Indication: Heart rate irregular
     Dosage: 143 MG, 1X/DAY (IN MORNING)
  7. CALCIUM\MAGNESIUM [Concomitant]
     Active Substance: CALCIUM\MAGNESIUM
     Dosage: UNK
  8. ROSUVASTATIN [Concomitant]
     Active Substance: ROSUVASTATIN
     Indication: Blood cholesterol abnormal
     Dosage: 5 MG, 1X/DAY (AT NIGHT)
  9. TERAZOSIN [Concomitant]
     Active Substance: TERAZOSIN HYDROCHLORIDE
     Indication: Blood pressure abnormal
     Dosage: 5 MG, 1X/DAY
  10. ASPIRIN [Concomitant]
     Active Substance: ASPIRIN
     Indication: Anticoagulant therapy
     Dosage: 81 MG

REACTIONS (8)
  - Cardiac disorder [Unknown]
  - Amnesia [Unknown]
  - Malaise [Unknown]
  - Confusional state [Unknown]
  - Speech disorder [Unknown]
  - Hypoacusis [Unknown]
  - Stress [Unknown]
  - Off label use [Unknown]

NARRATIVE: CASE EVENT DATE: 20220509
